FAERS Safety Report 7844934-4 (Version None)
Quarter: 2011Q4

REPORT INFORMATION
  Report Type: 
  Country: None (occurrence: None)
  Receive Date: 20111025
  Receipt Date: 20111013
  Transmission Date: 20120403
  Serious: Yes (Hospitalization, Other)
  Sender: FDA-Public Use
  Company Number: US-BAYER-2011-027003

PATIENT
  Sex: Female
  Weight: 65.76 kg

DRUGS (2)
  1. YASMIN [Suspect]
     Indication: PREMENSTRUAL SYNDROME
     Dosage: UNK
     Dates: start: 20040101, end: 20050101
  2. QVAR 40 [Concomitant]
     Indication: ASTHMA
     Dosage: UNK
     Dates: start: 20020101

REACTIONS (8)
  - EMOTIONAL DISTRESS [None]
  - PAIN [None]
  - ANXIETY [None]
  - CHOLECYSTECTOMY [None]
  - CEREBROVASCULAR ACCIDENT [None]
  - ANHEDONIA [None]
  - GENERAL PHYSICAL HEALTH DETERIORATION [None]
  - INJURY [None]
